FAERS Safety Report 7516763-2 (Version None)
Quarter: 2011Q2

REPORT INFORMATION
  Report Type: 
  Country: None (occurrence: None)
  Receive Date: 20110601
  Receipt Date: 20110526
  Transmission Date: 20111010
  Serious: Yes (Death)
  Sender: FDA-Public Use
  Company Number: US-AMGEN-USASP2010009676

PATIENT
  Age: 73 Year
  Sex: Male

DRUGS (6)
  1. IVIGLOB-EX [Concomitant]
     Indication: IDIOPATHIC THROMBOCYTOPENIC PURPURA
  2. NPLATE [Suspect]
     Indication: IDIOPATHIC THROMBOCYTOPENIC PURPURA
     Dosage: 70 A?G, UNK
     Route: 058
     Dates: start: 20091204, end: 20100602
  3. NPLATE [Suspect]
     Dosage: 70 A?G, UNK
     Route: 058
     Dates: start: 20091211
  4. NPLATE [Suspect]
     Indication: THROMBOCYTOPENIA
     Dosage: 1 A?G/KG, UNK
     Dates: start: 20100324
  5. NPLATE [Suspect]
     Dates: start: 20100324, end: 20100602
  6. CORTICOSTEROIDS [Concomitant]
     Indication: IDIOPATHIC THROMBOCYTOPENIC PURPURA

REACTIONS (2)
  - CARDIAC ARREST [None]
  - GLIOBLASTOMA [None]
